FAERS Safety Report 5380888-0 (Version None)
Quarter: 2007Q3

REPORT INFORMATION
  Report Type: 
  Country: None (occurrence: None)
  Receive Date: 20070706
  Receipt Date: 20070703
  Transmission Date: 20080115
  Serious: Yes (Hospitalization)
  Sender: FDA-Public Use
  Company Number: US-ASTRAZENECA-2007UW14226

PATIENT
  Age: 52 Year
  Sex: Male
  Weight: 83.9 kg

DRUGS (4)
  1. CRESTOR [Suspect]
     Indication: DIABETES PROPHYLAXIS
     Route: 048
     Dates: start: 20060801
  2. LOTREL [Concomitant]
  3. HYDROCHLOROTHIAZIDE [Concomitant]
  4. BACTRIM [Concomitant]

REACTIONS (8)
  - ARTHRALGIA [None]
  - ASTHENIA [None]
  - BIOPSY LIVER [None]
  - CYSTITIS [None]
  - FATIGUE [None]
  - HEPATITIS [None]
  - ILL-DEFINED DISORDER [None]
  - MALAISE [None]
